FAERS Safety Report 9580163 (Version 1)
Quarter: 2013Q4

REPORT INFORMATION
  Report Type: Spontaneous
  Country: US (occurrence: US)
  Receive Date: 20131002
  Receipt Date: 20131002
  Transmission Date: 20140711
  Serious: Yes (Other)
  Sender: FDA-Public Use
  Company Number: PHHY2013US107241

PATIENT
  Age: 25 Year
  Sex: Male

DRUGS (4)
  1. ARIPIPRAZOLE [Suspect]
     Indication: SCHIZOAFFECTIVE DISORDER
     Dosage: 15 MG, UNK
  2. RISPERIDONE [Interacting]
     Indication: SCHIZOAFFECTIVE DISORDER
     Dosage: 5.5 MG, UNK
  3. LITHIUM [Interacting]
     Indication: SCHIZOAFFECTIVE DISORDER
     Dosage: 1200 MG, UNK
  4. ASENAPINE [Interacting]
     Indication: SCHIZOAFFECTIVE DISORDER
     Dosage: 5 MG, BID
     Route: 060

REACTIONS (8)
  - Akathisia [Recovered/Resolved]
  - Restlessness [Recovered/Resolved]
  - Anxiety [Recovered/Resolved]
  - Panic reaction [Recovered/Resolved]
  - Irritability [Recovered/Resolved]
  - Sexual dysfunction [Unknown]
  - Drug interaction [Unknown]
  - Drug ineffective [Unknown]
